FAERS Safety Report 4951589-5 (Version None)
Quarter: 2006Q1

REPORT INFORMATION
  Report Type: 
  Country: None (occurrence: None)
  Receive Date: 20060323
  Receipt Date: 20060316
  Transmission Date: 20060701
  Serious: Yes (Other)
  Sender: FDA-Public Use
  Company Number: ZA-BRISTOL-MYERS SQUIBB COMPANY-13320379

PATIENT
  Age: 85 Year
  Sex: Female

DRUGS (2)
  1. TEQUIN [Suspect]
     Route: 048
  2. GLUCOVANCE [Concomitant]

REACTIONS (1)
  - HYPOGLYCAEMIC COMA [None]
